FAERS Safety Report 25473049 (Version 1)
Quarter: 2025Q2

REPORT INFORMATION
  Report Type: Spontaneous
  Country: DE (occurrence: DE)
  Receive Date: 20250624
  Receipt Date: 20250624
  Transmission Date: 20250717
  Serious: Yes (Other)
  Sender: HIKMA
  Company Number: None

PATIENT
  Age: 10 Year
  Sex: Female
  Weight: 44.9 kg

DRUGS (1)
  1. LINEZOLID [Suspect]
     Active Substance: LINEZOLID
     Indication: Product used for unknown indication
     Dosage: 1 DOSAGE FORM, Q8H
     Route: 042
     Dates: start: 20250509, end: 20250514

REACTIONS (1)
  - Vancomycin infusion reaction [Recovered/Resolved]

NARRATIVE: CASE EVENT DATE: 20250514
